FAERS Safety Report 10628452 (Version 1)
Quarter: 2014Q4

REPORT INFORMATION
  Report Type: Spontaneous
  Country: US (occurrence: US)
  Receive Date: 20141205
  Receipt Date: 20141205
  Transmission Date: 20150529
  Serious: No
  Sender: FDA-Public Use
  Company Number: US-BRISTOL-MYERS SQUIBB COMPANY-21206271

PATIENT
  Age: 71 Year
  Sex: Female

DRUGS (1)
  1. COUMADIN [Suspect]
     Active Substance: WARFARIN SODIUM
     Indication: BLOOD DISORDER
     Dosage: 1DF: 5MG AND 2.5MG?EXP DATE FOR COUMADIN 2.5MG: 07MAY2015

REACTIONS (3)
  - Alopecia [Unknown]
  - Dermatitis [Unknown]
  - International normalised ratio increased [Unknown]
